FAERS Safety Report 4441593-8 (Version None)
Quarter: 2004Q3

REPORT INFORMATION
  Report Type: 
  Country: None (occurrence: None)
  Receive Date: 20040907
  Receipt Date: 20040709
  Transmission Date: 20050211
  Serious: Yes (Death, Hospitalization, Disabling, Other)
  Sender: FDA-Public Use
  Company Number: 200415179US

PATIENT
  Age: 56 Year
  Sex: Male
  Weight: 86.4 kg

DRUGS (11)
  1. TAXOTERE [Suspect]
     Indication: PROSTATE CANCER
     Dates: start: 20040419, end: 20040511
  2. ESTRAMUSTINE [Concomitant]
  3. ZOMETA [Concomitant]
  4. DECADRON [Concomitant]
  5. HYDROCHLOROTHIAZIDE [Concomitant]
     Route: 048
  6. LIPITOR [Concomitant]
  7. COUMADIN [Concomitant]
  8. MULTI-VITAMINS [Concomitant]
  9. ZOFRAN [Concomitant]
  10. FENTANYL [Concomitant]
  11. CASODEX [Concomitant]

REACTIONS (12)
  - BLOOD CREATININE INCREASED [None]
  - BLOOD POTASSIUM INCREASED [None]
  - BLOOD SODIUM DECREASED [None]
  - BLOOD UREA INCREASED [None]
  - DRUG TOXICITY [None]
  - FATIGUE [None]
  - GENERAL PHYSICAL HEALTH DETERIORATION [None]
  - HAEMOGLOBIN DECREASED [None]
  - INTERSTITIAL LUNG DISEASE [None]
  - PNEUMONITIS [None]
  - PROTEINURIA [None]
  - RENAL TUBULAR ACIDOSIS [None]
